FAERS Safety Report 24619765 (Version 1)
Quarter: 2024Q4

REPORT INFORMATION
  Report Type: Spontaneous
  Country: BR (occurrence: BR)
  Receive Date: 20241114
  Receipt Date: 20241114
  Transmission Date: 20250115
  Serious: Yes (Hospitalization)
  Sender: BAYER HEALTHCARE PHARMACEUTICALS INC.
  Company Number: BR-BAYER-2024A162438

PATIENT
  Age: 49 Year
  Sex: Male

DRUGS (3)
  1. GADOBUTROL [Suspect]
     Active Substance: GADOBUTROL
     Indication: Magnetic resonance imaging abdominal
     Dosage: 7.5 ML, ONCE
     Dates: start: 20241030, end: 20241030
  2. GADOBUTROL [Suspect]
     Active Substance: GADOBUTROL
     Indication: Cholangiogram
  3. GADOBUTROL [Suspect]
     Active Substance: GADOBUTROL
     Indication: Abdominal pain upper

REACTIONS (1)
  - Respiratory tract oedema [Recovered/Resolved]

NARRATIVE: CASE EVENT DATE: 20241030
